FAERS Safety Report 13691697 (Version 2)
Quarter: 2017Q3

REPORT INFORMATION
  Report Type: Spontaneous
  Country: US (occurrence: US)
  Receive Date: 20170626
  Receipt Date: 20170918
  Transmission Date: 20171127
  Serious: No
  Sender: FDA-Public Use
  Company Number: US-ACTELION-A-NJ2017-155790

PATIENT
  Age: 72 Year
  Sex: Female

DRUGS (7)
  1. FUROSEMIDE. [Concomitant]
     Active Substance: FUROSEMIDE
  2. ADEMPAS [Concomitant]
     Active Substance: RIOCIGUAT
     Dosage: 2 MG, Q1MONTH
  3. OPSUMIT [Suspect]
     Active Substance: MACITENTAN
     Indication: PULMONARY ARTERIAL HYPERTENSION
     Dosage: 10 MG, QD
     Route: 048
     Dates: start: 20160120
  4. ELIQUIS [Concomitant]
     Active Substance: APIXABAN
  5. LOSARTAN. [Concomitant]
     Active Substance: LOSARTAN
  6. PRAVASTATIN. [Concomitant]
     Active Substance: PRAVASTATIN
  7. METOPROLOL. [Concomitant]
     Active Substance: METOPROLOL

REACTIONS (4)
  - Cough [Recovering/Resolving]
  - Peripheral swelling [Unknown]
  - Dizziness [Not Recovered/Not Resolved]
  - Eye infection [Not Recovered/Not Resolved]
